FAERS Safety Report 7529064 (Version 2)
Quarter: 2014Q4

REPORT INFORMATION
  Report Type: Spontaneous
  Country: FR (occurrence: FR)
  Receive Date: 20100805
  Receipt Date: 20141202
  Transmission Date: 20150529
  Serious: Yes (Hospitalization)
  Sender: FDA-Public Use
  Company Number: FR-JNJFOC-20100800907

PATIENT
  Age: 94 Year
  Sex: Female

DRUGS (15)
  1. COVERSYL [Concomitant]
     Active Substance: PERINDOPRIL
  2. ALLOPURINOL. [Concomitant]
     Active Substance: ALLOPURINOL
  3. MOLSIDOMINE [Concomitant]
     Active Substance: MOLSIDOMINE
  4. AMOXICILLIN. [Concomitant]
     Active Substance: AMOXICILLIN
     Dates: start: 20100514, end: 20100531
  5. FLUINDIONE [Concomitant]
     Active Substance: FLUINDIONE
  6. QVAR [Concomitant]
     Active Substance: BECLOMETHASONE DIPROPIONATE
  7. GLYCERYL TRINITRATE [Concomitant]
     Active Substance: NITROGLYCERIN
  8. TOPALGIC [Suspect]
     Active Substance: TRAMADOL
     Indication: PRODUCT USED FOR UNKNOWN INDICATION
     Route: 048
     Dates: start: 20100508, end: 20100511
  9. AUGMENTIN [Concomitant]
     Active Substance: AMOXICILLIN\CLAVULANATE POTASSIUM
     Dates: start: 20100508, end: 20100514
  10. SPIRIVA [Concomitant]
     Active Substance: TIOTROPIUM BROMIDE MONOHYDRATE
  11. FLAGYL [Suspect]
     Active Substance: METRONIDAZOLE\METRONIDAZOLE HYDROCHLORIDE
     Indication: PRODUCT USED FOR UNKNOWN INDICATION
     Route: 048
     Dates: start: 20100514, end: 20100525
  12. SINGULAIR [Concomitant]
     Active Substance: MONTELUKAST SODIUM
  13. HEPARINE CHOAY [Suspect]
     Active Substance: HEPARIN SODIUM
     Indication: PRODUCT USED FOR UNKNOWN INDICATION
     Route: 058
     Dates: start: 20100506, end: 20100527
  14. LASILIX [Concomitant]
     Active Substance: FUROSEMIDE
  15. FORMOTEROL [Concomitant]
     Active Substance: FORMOTEROL

REACTIONS (1)
  - Thrombocytopenia [Recovered/Resolved]

NARRATIVE: CASE EVENT DATE: 20100518
